FAERS Safety Report 12511175 (Version 1)
Quarter: 2016Q2

REPORT INFORMATION
  Report Type: Spontaneous
  Country: ES (occurrence: ES)
  Receive Date: 20160629
  Receipt Date: 20160629
  Transmission Date: 20160815
  Serious: Yes (Death)
  Sender: FDA-Public Use
  Company Number: ES-BAYER-2016-123747

PATIENT
  Age: 41 Year
  Sex: Female

DRUGS (1)
  1. MIRENA [Suspect]
     Active Substance: LEVONORGESTREL
     Dosage: 20 MCG/24HR, CONT
     Route: 015
     Dates: start: 201111

REACTIONS (5)
  - Fluid retention [None]
  - Headache [None]
  - Cerebral thrombosis [Fatal]
  - Irritability [None]
  - Alopecia [None]

NARRATIVE: CASE EVENT DATE: 201111
